FAERS Safety Report 19200133 (Version 1)
Quarter: 2021Q2

REPORT INFORMATION
  Report Type: Spontaneous
  Country: CA (occurrence: CA)
  Receive Date: 20210430
  Receipt Date: 20210430
  Transmission Date: 20210717
  Serious: Yes (Hospitalization)
  Sender: FDA-Public Use
  Company Number: CA-TEVA-2021-CA-1905464

PATIENT
  Age: 56 Year
  Sex: Female

DRUGS (12)
  1. STATEX [Concomitant]
  2. CENTRUM ADVANTAGE [Concomitant]
     Active Substance: VITAMINS
  3. LAX?A?DAY [Concomitant]
     Active Substance: POLYETHYLENE GLYCOL 3350
  4. NORVASC [Concomitant]
     Active Substance: AMLODIPINE BESYLATE
  5. VITAMIN B6 [Concomitant]
     Active Substance: PYRIDOXINE HYDROCHLORIDE
  6. TAXOL [Suspect]
     Active Substance: PACLITAXEL
     Indication: ENDOMETRIAL ADENOCARCINOMA
     Route: 065
  7. DECADRON [Concomitant]
     Active Substance: DEXAMETHASONE
  8. M?CAL SOLUTION D 400 [Concomitant]
  9. STEMETIL [Concomitant]
     Active Substance: PROCHLORPERAZINE
  10. VENTOLIN [Concomitant]
     Active Substance: ALBUTEROL SULFATE
     Route: 055
  11. GRASTOFIL SINGLE USE PRE?FILLED SYRINGE [Concomitant]
     Active Substance: FILGRASTIM
  12. CARBOPLATIN. [Suspect]
     Active Substance: CARBOPLATIN
     Indication: ENDOMETRIAL ADENOCARCINOMA
     Route: 065

REACTIONS (7)
  - Superinfection bacterial [Recovered/Resolved with Sequelae]
  - Skin graft [Recovered/Resolved with Sequelae]
  - Chemical burn [Recovered/Resolved with Sequelae]
  - Skin necrosis [Recovered/Resolved with Sequelae]
  - Catheter site extravasation [Recovered/Resolved with Sequelae]
  - Debridement [Recovered/Resolved with Sequelae]
  - Device issue [Recovered/Resolved with Sequelae]
